FAERS Safety Report 8488827-0 (Version None)
Quarter: 2012Q3

REPORT INFORMATION
  Report Type: 
  Country: None (occurrence: None)
  Receive Date: 20120705
  Receipt Date: 20120625
  Transmission Date: 20120928
  Serious: Yes (Other)
  Sender: FDA-Public Use
  Company Number: JP-VERTEX PHARMACEUTICALS INC.-AE-2012-009550

PATIENT
  Age: 54 Year
  Sex: Male

DRUGS (11)
  1. TELAVIC (TELAPREVIR) [Suspect]
     Indication: HEPATITIS C
     Route: 048
     Dates: start: 20120308, end: 20120531
  2. LENDORMIN [Concomitant]
     Route: 048
  3. DEPAS [Concomitant]
     Route: 048
     Dates: start: 20120420
  4. URSO 250 [Concomitant]
     Route: 048
     Dates: start: 20120322, end: 20120405
  5. DEPAS [Concomitant]
     Route: 048
     Dates: end: 20120419
  6. URSO 250 [Concomitant]
     Route: 048
     Dates: end: 20120322
  7. PROHEPARUM [Concomitant]
     Route: 048
     Dates: end: 20120322
  8. FAMOTIDINE [Concomitant]
     Route: 048
  9. PEGINTERFERON ALFA-2B [Concomitant]
     Indication: HEPATITIS C
     Route: 058
     Dates: start: 20120308
  10. RIBAVIRIN [Concomitant]
     Route: 048
     Dates: start: 20120308
  11. GLYCRON [Concomitant]
     Route: 048
     Dates: end: 20120322

REACTIONS (1)
  - EPIDERMOLYSIS [None]
